FAERS Safety Report 8100026-0 (Version None)
Quarter: 2012Q1

REPORT INFORMATION
  Report Type: 
  Country: None (occurrence: None)
  Receive Date: 20120129
  Receipt Date: 20111202
  Transmission Date: 20120608
  Serious: Yes (Other)
  Sender: FDA-Public Use
  Company Number: US-ABBOTT-11P-163-0870758-00

PATIENT
  Sex: Male
  Weight: 113.5 kg

DRUGS (14)
  1. GLIPIZIDE [Concomitant]
     Indication: DIABETES MELLITUS
  2. OMEGA-3 FATTY ACIDS [Concomitant]
     Indication: PRODUCT USED FOR UNKNOWN INDICATION
  3. HUMIRA [Suspect]
     Dates: start: 20110101
  4. GLUCOSAMINE + CHONDROITIN [Concomitant]
     Indication: PRODUCT USED FOR UNKNOWN INDICATION
     Dosage: 1500MG/1200MG, 1 DAILY
  5. HUMIRA [Suspect]
     Indication: PSORIATIC ARTHROPATHY
     Route: 058
     Dates: start: 20080101, end: 20101110
  6. LIPITOR [Concomitant]
     Indication: BLOOD CHOLESTEROL INCREASED
  7. BENICAR [Concomitant]
     Indication: HYPERTENSION
  8. ASCORBIC ACID [Concomitant]
     Indication: PRODUCT USED FOR UNKNOWN INDICATION
  9. CALCIUM CARBONATE-VITAMIN D 12 [Concomitant]
     Indication: PRODUCT USED FOR UNKNOWN INDICATION
  10. IBUPROFEN [Concomitant]
     Indication: PAIN
     Dosage: 1 TABLET THREE TIMES DAILY AS NEEDED
  11. METFORMIN HCL [Concomitant]
     Indication: DIABETES MELLITUS
  12. HYDROCHLOROTHIAZIDE [Concomitant]
     Indication: PRODUCT USED FOR UNKNOWN INDICATION
  13. MULTIVITAMINS + MINERALS PLUS LUTEIN [Concomitant]
     Indication: VITAMIN SUPPLEMENTATION
  14. ASPIRIN [Concomitant]
     Indication: PRODUCT USED FOR UNKNOWN INDICATION

REACTIONS (8)
  - ABDOMINAL DISCOMFORT [None]
  - NAIL PSORIASIS [None]
  - ARTHRALGIA [None]
  - OSTEOMYELITIS ACUTE [None]
  - PSORIASIS [None]
  - IMPAIRED HEALING [None]
  - ANKLE FRACTURE [None]
  - STAPHYLOCOCCAL INFECTION [None]
